FAERS Safety Report 6333117-5 (Version None)
Quarter: 2009Q3

REPORT INFORMATION
  Report Type: 
  Country: None (occurrence: None)
  Receive Date: 20090828
  Receipt Date: 20090821
  Transmission Date: 20100115
  Serious: Yes (Hospitalization)
  Sender: FDA-Public Use
  Company Number: AT-AVENTIS-200919188GDDC

PATIENT
  Age: 90 Year
  Sex: Male
  Weight: 80 kg

DRUGS (9)
  1. AMARYL [Suspect]
     Route: 048
  2. LASIX [Suspect]
     Route: 048
  3. LASILACTON [Suspect]
     Dosage: DOSE: 20/50
     Route: 048
  4. CIPRALEX [Concomitant]
     Route: 048
  5. ENAC                               /00574902/ [Concomitant]
     Route: 048
  6. CREON [Concomitant]
     Route: 048
  7. OSPEXIN [Concomitant]
     Route: 048
  8. ASPIRIN [Concomitant]
     Route: 048
  9. PRAVASTATINE NA [Concomitant]
     Route: 048

REACTIONS (4)
  - DEHYDRATION [None]
  - HYPERKALAEMIA [None]
  - HYPOGLYCAEMIA [None]
  - RENAL IMPAIRMENT [None]
